FAERS Safety Report 6901908-5 (Version None)
Quarter: 2010Q3

REPORT INFORMATION
  Report Type: 
  Country: None (occurrence: None)
  Receive Date: 20100803
  Receipt Date: 20080326
  Transmission Date: 20110219
  Serious: No
  Sender: FDA-Public Use
  Company Number: US-PFIZER INC-2008027904

PATIENT
  Sex: Female

DRUGS (9)
  1. LYRICA [Suspect]
     Indication: BRACHIAL PLEXUS INJURY
     Dates: start: 20071101
  2. CYMBALTA [Suspect]
     Indication: BRACHIAL PLEXUS INJURY
  3. TERIPARATIDE [Suspect]
     Indication: OSTEOPOROSIS
     Route: 058
     Dates: start: 20080325
  4. OMEPRAZOLE [Concomitant]
  5. ACETYLSALICYLIC ACID SRT [Concomitant]
  6. SINEMET [Concomitant]
  7. MIRAPEX [Concomitant]
  8. VITAMIN D [Concomitant]
  9. PERCOCET [Concomitant]

REACTIONS (1)
  - VERTIGO [None]
